FAERS Safety Report 8234604-5 (Version None)
Quarter: 2012Q1

REPORT INFORMATION
  Report Type: 
  Country: None (occurrence: None)
  Receive Date: 20120326
  Receipt Date: 20120315
  Transmission Date: 20120608
  Serious: Yes (Death)
  Sender: FDA-Public Use
  Company Number: CA-ROCHE-1037804

PATIENT
  Age: 63 Year
  Sex: Male
  Weight: 57.2 kg

DRUGS (3)
  1. ACTEMRA [Suspect]
     Indication: RHEUMATOID ARTHRITIS
     Dosage: DATE OF LAST DOSE PRIOR TO EVENT: 09/AUG/2011
     Route: 058
     Dates: start: 20110301
  2. ACTEMRA [Suspect]
     Indication: RHEUMATOID ARTHRITIS
     Dosage: LST DOSE TAKEN: 162 MG, LAST DOSE PRIOR TO SAE: ON 24 JANUARY 2012
     Route: 058
     Dates: start: 20110823
  3. ACTEMRA [Suspect]
     Dosage: LAST DOSE PRIOR TO SAE: ON 12 JULY 2011
     Route: 042
     Dates: start: 20110301

REACTIONS (1)
  - DEATH [None]
